FAERS Safety Report 5694083-9 (Version None)
Quarter: 2008Q2

REPORT INFORMATION
  Report Type: 
  Country: None (occurrence: None)
  Receive Date: 20080402
  Receipt Date: 20080320
  Transmission Date: 20081010
  Serious: Yes (Other)
  Sender: FDA-Public Use
  Company Number: 2008-174077-NL

PATIENT
  Age: 19 Year
  Sex: Female
  Weight: 81.6 kg

DRUGS (1)
  1. IMPLANON [Suspect]
     Indication: CONTRACEPTION
     Dosage: SUBDERMAL
     Route: 059
     Dates: start: 20070101

REACTIONS (3)
  - CONVULSION [None]
  - FOAMING AT MOUTH [None]
  - MOOD SWINGS [None]
